FAERS Safety Report 9449349 (Version 2)
Quarter: 2014Q1

REPORT INFORMATION
  Report Type: Spontaneous
  Country: US (occurrence: US)
  Receive Date: 20130808
  Receipt Date: 20140109
  Transmission Date: 20141002
  Serious: No
  Sender: FDA-Public Use
  Company Number: US-009507513-1307USA017370

PATIENT
  Age: 55 Year
  Sex: Female
  Weight: 70.3 kg

DRUGS (2)
  1. HYZAAR [Suspect]
     Indication: HYPERTENSION
     Dosage: ONCE A DAY ON NIGHT, TOTAL DAILY DOSE: 50-12.5 (UNIT NOT PROVIDED)
     Route: 048
     Dates: start: 20050511, end: 20120120
  2. LOSARTAN POTASSIUM (+) HYDROCHLOROTHIAZIDE [Suspect]
     Indication: HYPERTENSION
     Dosage: UNK
     Route: 048
     Dates: start: 201207

REACTIONS (3)
  - Urticaria [Not Recovered/Not Resolved]
  - Angioedema [Not Recovered/Not Resolved]
  - Urticaria [Not Recovered/Not Resolved]
